FAERS Safety Report 9468172 (Version 1)
Quarter: 2013Q3

REPORT INFORMATION
  Report Type: Spontaneous
  Country: US (occurrence: US)
  Receive Date: 20130821
  Receipt Date: 20130821
  Transmission Date: 20140515
  Serious: No
  Sender: FDA-Public Use
  Company Number: US-BRACCO-009479

PATIENT
  Sex: Female

DRUGS (2)
  1. KINEVAC [Suspect]
     Indication: HEPATOBILIARY SCAN
     Dosage: 0.02 MICROGRAMS PER KG OF PATIENT WEIGHT, DILUTED TO 100 ML IN NORMAL SALINE FOR ADMINISTRATION
     Route: 042
     Dates: start: 20130422, end: 20130422
  2. MEBROFENIN [Concomitant]
     Dosage: 0.02 MICROGRAMS PER KG
     Route: 042
     Dates: start: 20130422, end: 20130422

REACTIONS (1)
  - Drug effect decreased [Unknown]
